FAERS Safety Report 20660020 (Version 1)
Quarter: 2022Q1

REPORT INFORMATION
  Report Type: Report from Study
  Country: FR (occurrence: FR)
  Receive Date: 20220331
  Receipt Date: 20220331
  Transmission Date: 20220423
  Serious: Yes (Other)
  Sender: FDA-Public Use
  Company Number: FR-CELGENE-FRA-20211202266

PATIENT
  Age: 41 Year
  Sex: Female
  Weight: 50 kg

DRUGS (14)
  1. LENALIDOMIDE [Suspect]
     Active Substance: LENALIDOMIDE
     Indication: Plasma cell myeloma
     Dosage: FREQUENCY TEXT: NOT PROVIDED?25 MILLIGRAM
     Route: 048
     Dates: start: 20190827, end: 20200517
  2. LENALIDOMIDE [Suspect]
     Active Substance: LENALIDOMIDE
     Dosage: FREQUENCY TEXT: NOT PROVIDED?20 MILLIGRAM
     Route: 048
     Dates: start: 20200525, end: 20200614
  3. LENALIDOMIDE [Suspect]
     Active Substance: LENALIDOMIDE
     Dosage: FREQUENCY TEXT: NOT PROVIDED?10 MILLIGRAM
     Route: 048
     Dates: start: 20200625, end: 20210910
  4. LENALIDOMIDE [Suspect]
     Active Substance: LENALIDOMIDE
     Dosage: FREQUENCY TEXT: NOT PROVIDED?15 MILLIGRAM
     Route: 048
     Dates: start: 20200923, end: 20210922
  5. DEXAMETHASONE [Suspect]
     Active Substance: DEXAMETHASONE
     Indication: Plasma cell myeloma
     Dosage: FREQUENCY TEXT: NOT PROVIDED
     Route: 048
     Dates: start: 20190827
  6. DEXAMETHASONE [Suspect]
     Active Substance: DEXAMETHASONE
     Dosage: FREQUENCY TEXT: NOT PROVIDED
     Route: 048
     Dates: start: 20200605
  7. BORTEZOMIB [Suspect]
     Active Substance: BORTEZOMIB
     Indication: Plasma cell myeloma
     Dosage: FREQUENCY TEXT: NOT PROVIDED
     Route: 058
     Dates: start: 20190827
  8. BORTEZOMIB [Suspect]
     Active Substance: BORTEZOMIB
     Dosage: FREQUENCY TEXT: NOT PROVIDED
     Route: 058
     Dates: start: 20200604
  9. BACTRIM [Concomitant]
     Active Substance: SULFAMETHOXAZOLE\TRIMETHOPRIM
     Indication: Prophylaxis
     Dosage: 400/80 MG
     Route: 048
     Dates: start: 20200325
  10. VALACYCLOVIR HYDROCHLORIDE [Concomitant]
     Active Substance: VALACYCLOVIR HYDROCHLORIDE
     Indication: Prophylaxis
     Dosage: 1000 MILLIGRAM
     Route: 048
     Dates: start: 20190827
  11. LEUCOVORIN CALCIUM [Concomitant]
     Active Substance: LEUCOVORIN CALCIUM
     Indication: Supplementation therapy
     Route: 048
     Dates: start: 20200325
  12. PANTOPRAZOLE [Concomitant]
     Active Substance: PANTOPRAZOLE
     Indication: Prophylaxis
     Dosage: 40 MILLIGRAM
     Route: 048
     Dates: start: 20200430
  13. DAFALGAN CODEINE [Concomitant]
     Active Substance: ACETAMINOPHEN\CODEINE PHOSPHATE
     Indication: Headache
     Dosage: FREQUENCY TEXT: AS NEEDED
     Route: 048
     Dates: start: 20200525
  14. HIZENTRA [Concomitant]
     Active Substance: HUMAN IMMUNOGLOBULIN G
     Indication: Hypogammaglobulinaemia
     Route: 058
     Dates: start: 20200525

REACTIONS (1)
  - Cervical dysplasia [Recovered/Resolved]

NARRATIVE: CASE EVENT DATE: 20210910
